FAERS Safety Report 11097640 (Version 2)
Quarter: 2015Q2

REPORT INFORMATION
  Report Type: Spontaneous
  Country: US (occurrence: US)
  Receive Date: 20150507
  Receipt Date: 20150526
  Transmission Date: 20150821
  Serious: Yes (Life-Threatening, Other)
  Sender: FDA-Public Use
  Company Number: US-009507513-1505USA001726

PATIENT
  Sex: Male
  Weight: 91.61 kg

DRUGS (1)
  1. JANUVIA [Suspect]
     Active Substance: SITAGLIPTIN PHOSPHATE
     Indication: BLOOD GLUCOSE
     Dosage: 100 MG (1 TAB PER DAY) QD
     Route: 048
     Dates: start: 201403, end: 201405

REACTIONS (7)
  - Pruritus [Recovered/Resolved]
  - Blister [Recovered/Resolved]
  - Vomiting [Recovered/Resolved]
  - Swelling face [Recovered/Resolved]
  - Eye swelling [Recovered/Resolved]
  - Erythema [Recovered/Resolved]
  - Urticaria [Recovered/Resolved]

NARRATIVE: CASE EVENT DATE: 20140518
